FAERS Safety Report 21591001 (Version 1)
Quarter: 2022Q4

REPORT INFORMATION
  Report Type: Spontaneous
  Country: CN (occurrence: CN)
  Receive Date: 20221114
  Receipt Date: 20221114
  Transmission Date: 20230113
  Serious: Yes (Hospitalization)
  Sender: FDA-Public Use
  Company Number: CN-HALEON-CNCH2022APC043982

PATIENT

DRUGS (2)
  1. IBUPROFEN [Suspect]
     Active Substance: IBUPROFEN
     Indication: Spinal pain
     Dosage: 0.3 G, BID
     Route: 048
     Dates: start: 20221108, end: 20221108
  2. NIFEDIPINE [Suspect]
     Active Substance: NIFEDIPINE
     Indication: Spinal pain
     Dosage: 10 MG, QD
     Route: 048
     Dates: start: 20221108, end: 20221108

REACTIONS (3)
  - Diarrhoea [Recovering/Resolving]
  - Vomiting [Recovering/Resolving]
  - Vision blurred [Recovering/Resolving]

NARRATIVE: CASE EVENT DATE: 20221108
